FAERS Safety Report 21645310 (Version 1)
Quarter: 2022Q4

REPORT INFORMATION
  Report Type: Spontaneous
  Country: FR (occurrence: FR)
  Receive Date: 20221126
  Receipt Date: 20221126
  Transmission Date: 20230112
  Serious: Yes (Hospitalization)
  Sender: FDA-Public Use
  Company Number: None

PATIENT
  Age: 65 Year
  Sex: Female

DRUGS (6)
  1. ATORVASTATIN [Suspect]
     Active Substance: ATORVASTATIN
     Indication: Hypercholesterolaemia
     Dosage: UNIT DOSE: 40 MG, DURATION 2 MONTHS
     Dates: start: 202208, end: 20221017
  2. CLOPIDOGREL BESILATE [Suspect]
     Active Substance: CLOPIDOGREL BESILATE
     Indication: Prophylaxis
     Dosage: UNIT DOSE: 75 MG, DURATION 2 MONTHS
     Dates: start: 202208, end: 20221020
  3. BISOPROLOL FUMARATE [Suspect]
     Active Substance: BISOPROLOL FUMARATE
     Indication: Cardiac failure
     Dosage: UNIT DOSE: 1.25 MG, DURATION 2 MONTHS
     Dates: start: 202208, end: 20221017
  4. AMIODARONE [Suspect]
     Active Substance: AMIODARONE
     Indication: Arrhythmia
     Dosage: DURATION 2 MONTHS
     Dates: start: 202208, end: 20221017
  5. ELIQUIS [Suspect]
     Active Substance: APIXABAN
     Indication: Prophylaxis
     Dosage: 10 MILLIGRAM DAILY; 5MG MORNING AND EVENING
     Dates: start: 202208, end: 20221017
  6. ENTRESTO [Suspect]
     Active Substance: SACUBITRIL\VALSARTAN
     Indication: Cardiac failure
     Dosage: UNIT DOSE: 2 DF
     Dates: start: 202208, end: 20221017

REACTIONS (1)
  - Hepatitis acute [Not Recovered/Not Resolved]

NARRATIVE: CASE EVENT DATE: 20221017
